FAERS Safety Report 17404074 (Version 1)
Quarter: 2020Q1

REPORT INFORMATION
  Report Type: Spontaneous
  Country: US (occurrence: US)
  Receive Date: 20200211
  Receipt Date: 20200211
  Transmission Date: 20200409
  Serious: Yes (Other)
  Sender: FDA-Public Use
  Company Number: US-ENDO PHARMACEUTICALS INC-2019-105118

PATIENT
  Age: 41 Year
  Sex: Female
  Weight: 89.81 kg

DRUGS (2)
  1. METHYLPREDNISOLONE. [Suspect]
     Active Substance: METHYLPREDNISOLONE
     Indication: COUGH
  2. METHYLPREDNISOLONE. [Suspect]
     Active Substance: METHYLPREDNISOLONE
     Indication: BRONCHITIS
     Dosage: 4 MG, UNKNOWN, TAPERING DOSE
     Route: 048
     Dates: start: 20190412, end: 20190415

REACTIONS (4)
  - Depression [Unknown]
  - Pancreatitis [Unknown]
  - Swelling face [Unknown]
  - Off label use [Recovered/Resolved]

NARRATIVE: CASE EVENT DATE: 20190416
